FAERS Safety Report 19085326 (Version 1)
Quarter: 2021Q2

REPORT INFORMATION
  Report Type: Spontaneous
  Country: US (occurrence: US)
  Receive Date: 20210402
  Receipt Date: 20210402
  Transmission Date: 20210717
  Serious: No
  Sender: FDA-Public Use
  Company Number: US-AJANTA PHARMA USA INC.-2108822

PATIENT
  Sex: Male

DRUGS (2)
  1. ENTACAPONE (ANDA 205792) [Suspect]
     Active Substance: ENTACAPONE
     Indication: PARKINSON^S DISEASE
  2. CARBIDOPA AND LEVODOPA [Concomitant]
     Active Substance: CARBIDOPA\LEVODOPA

REACTIONS (1)
  - Product odour abnormal [Unknown]
